FAERS Safety Report 4855393-8 (Version None)
Quarter: 2005Q4

REPORT INFORMATION
  Report Type: 
  Country: None (occurrence: None)
  Receive Date: 20051125
  Receipt Date: 20050601
  Transmission Date: 20060501
  Serious: Yes (Hospitalization)
  Sender: FDA-Public Use
  Company Number: US-JNJFOC-20050105962

PATIENT
  Age: 44 Year
  Sex: Female

DRUGS (8)
  1. LEVAQUIN [Suspect]
     Indication: SINUSITIS
     Dosage: 500 MG, IN 1 DAY
     Dates: start: 20041201
  2. FLOVENT [Concomitant]
  3. SEROVENT (SALMETEROL XINAFOATE) [Concomitant]
  4. PREDNISONE TAB [Concomitant]
  5. RHINOCORT [Concomitant]
  6. XANAX [Concomitant]
  7. PERCOCET [Concomitant]
  8. METHADONE [Concomitant]

REACTIONS (1)
  - PNEUMONIA [None]
